FAERS Safety Report 20178283 (Version 1)
Quarter: 2021Q4

REPORT INFORMATION
  Report Type: Spontaneous
  Country: PT (occurrence: PT)
  Receive Date: 20211213
  Receipt Date: 20211213
  Transmission Date: 20220303
  Serious: Yes (Other)
  Sender: FDA-Public Use
  Company Number: PT-BAXTER-2021BAX038914

PATIENT
  Age: 48 Year
  Sex: Female

DRUGS (2)
  1. CALCIUM CHLORIDE\ICODEXTRIN\MAGNESIUM CHLORIDE\SODIUM CHLORIDE\SODIUM [Suspect]
     Active Substance: CALCIUM CHLORIDE\ICODEXTRIN\MAGNESIUM CHLORIDE\SODIUM CHLORIDE\SODIUM LACTATE
     Indication: Peritoneal dialysis
     Dosage: SINGLE DAILY 2L EXCHANGE OF ISOTONIC ICODEXTRIN DURING 8 HOURS
     Route: 033
  2. FUROSEMIDE [Concomitant]
     Active Substance: FUROSEMIDE
     Indication: Diuretic therapy
     Dosage: UP TO 240MG A DAY
     Route: 065

REACTIONS (1)
  - Drug ineffective [Unknown]
